FAERS Safety Report 25873172 (Version 1)
Quarter: 2025Q4

REPORT INFORMATION
  Report Type: Spontaneous
  Country: US (occurrence: US)
  Receive Date: 20251002
  Receipt Date: 20251002
  Transmission Date: 20260118
  Serious: Yes (Other)
  Sender: BAYER HEALTHCARE PHARMACEUTICALS INC.
  Company Number: US-BAYER-2025A126907

PATIENT
  Age: 73 Year
  Sex: Male

DRUGS (38)
  1. NUBEQA [Suspect]
     Active Substance: DAROLUTAMIDE
     Indication: Product used for unknown indication
  2. ORGOVYX [Suspect]
     Active Substance: RELUGOLIX
     Indication: Prostate cancer
     Dosage: UNK
     Dates: end: 20250804
  3. ORGOVYX [Suspect]
     Active Substance: RELUGOLIX
     Indication: Prostate cancer
     Dosage: UNK
     Dates: start: 202508
  4. FOLIC ACID [Concomitant]
     Active Substance: FOLIC ACID
  5. CALCIUM SENNOSIDES [Concomitant]
     Active Substance: SENNOSIDES
  6. VALACYCLOVIR HYDROCHLORIDE [Concomitant]
     Active Substance: VALACYCLOVIR HYDROCHLORIDE
  7. CELECOXIB [Concomitant]
     Active Substance: CELECOXIB
  8. FENTANYL [Concomitant]
     Active Substance: FENTANYL
  9. MELATONIN [Concomitant]
     Active Substance: MELATONIN
  10. METAMUCIL [Concomitant]
     Active Substance: PLANTAGO SEED
  11. VITAMIN C [Concomitant]
     Active Substance: ASCORBIC ACID
  12. QUERCETIN [Concomitant]
     Active Substance: QUERCETIN
  13. CYCLOBENZAPRINE [Concomitant]
     Active Substance: CYCLOBENZAPRINE
  14. Olive leaf [Concomitant]
  15. TEA LEAF [Concomitant]
     Active Substance: TEA LEAF
  16. OXYCODONE HYDROCHLORIDE [Concomitant]
     Active Substance: OXYCODONE HYDROCHLORIDE
  17. SULFAMETHOXAZOLE AND TRIMETHOPRIM [Concomitant]
     Active Substance: SULFAMETHOXAZOLE\TRIMETHOPRIM
  18. TADALAFIL [Concomitant]
     Active Substance: TADALAFIL
  19. TELMISARTAN [Concomitant]
     Active Substance: TELMISARTAN
  20. ADEMETIONINE [Concomitant]
     Active Substance: ADEMETIONINE
  21. Tmg [Concomitant]
  22. Turmeric complex [Concomitant]
  23. ZINC [Concomitant]
     Active Substance: ZINC
  24. FLAXSEED [Concomitant]
     Active Substance: FLAX SEED
  25. COENZYME Q10 [Concomitant]
     Active Substance: DIETARY SUPPLEMENT\UBIDECARENONE
  26. OMEGA 3 [Concomitant]
     Active Substance: CAPSAICIN
  27. VITAMIN B12 [Concomitant]
     Active Substance: CYANOCOBALAMIN
  28. VITAMIN D3 [Concomitant]
     Active Substance: CHOLECALCIFEROL
  29. Tocotrienols nos [Concomitant]
  30. Vita e [Concomitant]
  31. Calcium citrate magnesium and zinc with vitamin d3 [Concomitant]
  32. Triple magnesium complex [Concomitant]
  33. NAC [Concomitant]
  34. MAGNESIUM [Concomitant]
     Active Substance: MAGNESIUM
  35. OMEGA-3 ACIDS [Concomitant]
     Active Substance: OMEGA-3 FATTY ACIDS
  36. ZINC [Concomitant]
     Active Substance: ZINC
  37. ALFUZOSIN HYDROCHLORIDE [Concomitant]
     Active Substance: ALFUZOSIN HYDROCHLORIDE
  38. DIMETHYL SULFONE [Concomitant]
     Active Substance: DIMETHYL SULFONE

REACTIONS (8)
  - Gait disturbance [None]
  - Pain [None]
  - Central obesity [None]
  - Bone pain [None]
  - Weight increased [None]
  - Myalgia [None]
  - Arthralgia [None]
  - Product dose omission issue [None]

NARRATIVE: CASE EVENT DATE: 20250804
